FAERS Safety Report 24196285 (Version 5)
Quarter: 2024Q4

REPORT INFORMATION
  Report Type: Report from Study
  Country: JP (occurrence: JP)
  Receive Date: 20240809
  Receipt Date: 20241118
  Transmission Date: 20250115
  Serious: Yes (Life-Threatening, Hospitalization)
  Sender: BIOMARIN
  Company Number: JP-BIOMARINAP-JP-2024-159750

PATIENT

DRUGS (1)
  1. VOXZOGO [Suspect]
     Active Substance: VOSORITIDE
     Indication: Osteochondrodysplasia
     Dosage: 0.25 MILLILITER
     Route: 058
     Dates: start: 20230224

REACTIONS (1)
  - Foramen magnum stenosis [Recovering/Resolving]

NARRATIVE: CASE EVENT DATE: 20240201
